FAERS Safety Report 7550493-6 (Version None)
Quarter: 2011Q2

REPORT INFORMATION
  Report Type: 
  Country: None (occurrence: None)
  Receive Date: 20110615
  Receipt Date: 20110614
  Transmission Date: 20111010
  Serious: Yes (Life-Threatening)
  Sender: FDA-Public Use
  Company Number: IT-SANOFI-AVENTIS-2011SA033978

PATIENT
  Age: 69 Year
  Sex: Male

DRUGS (8)
  1. ELOXATIN [Suspect]
     Route: 042
     Dates: start: 20110328, end: 20110328
  2. ZANTAC [Concomitant]
     Route: 042
  3. ATARAX [Concomitant]
     Route: 048
  4. SCOPOLAMINE [Concomitant]
     Route: 042
  5. CAMPTOSAR [Concomitant]
     Route: 065
  6. DEXAMETHASONE SODIUM PHOSPHATE [Concomitant]
     Route: 042
  7. NAVOBAN [Concomitant]
     Route: 042
  8. ELOXATIN [Suspect]
     Route: 042
     Dates: start: 20110505, end: 20110505

REACTIONS (4)
  - HYPOVOLAEMIC SHOCK [None]
  - CHEST DISCOMFORT [None]
  - MALAISE [None]
  - HYPOTENSION [None]
